FAERS Safety Report 7938684 (Version 6)
Quarter: 2014Q1

REPORT INFORMATION
  Report Type: Spontaneous
  Country: US (occurrence: US)
  Receive Date: 20110510
  Receipt Date: 20140127
  Transmission Date: 20141002
  Serious: Yes (Hospitalization, Other)
  Sender: FDA-Public Use
  Company Number: US-BAYER-2011-038267

PATIENT
  Age: 22 Year
  Sex: Female
  Weight: 104 kg

DRUGS (13)
  1. YAZ [Suspect]
     Indication: PREMENSTRUAL DYSPHORIC DISORDER
  2. YASMIN [Suspect]
     Indication: CONTRACEPTION
     Dosage: UNK
     Dates: start: 2006, end: 2008
  3. YASMIN [Suspect]
     Indication: ACNE
  4. VITAMIN C [ASCORBIC ACID] [Concomitant]
  5. ANTIMIGRAINE PREPARATIONS [Concomitant]
     Dosage: UNK
     Dates: start: 2001
  6. IBUPROFEN [IBUPROFEN] [Concomitant]
  7. TYLENOL [PARACETAMOL] [Concomitant]
  8. ADVIL [IBUPROFEN] [Concomitant]
  9. ALBUTEROL [Concomitant]
     Dosage: MULTI DOSE INHALER
  10. VICODIN [Concomitant]
     Route: 048
  11. BENADRYL [Concomitant]
     Route: 048
  12. YAZ [Suspect]
     Indication: CONTRACEPTION
     Dosage: UNK
     Dates: start: 2006, end: 2008
  13. YAZ [Suspect]
     Indication: ACNE

REACTIONS (8)
  - Cholecystectomy [None]
  - Cholelithiasis [None]
  - Cholecystitis chronic [None]
  - Abdominal discomfort [None]
  - Unevaluable event [None]
  - Irritable bowel syndrome [None]
  - Unevaluable event [None]
  - Unevaluable event [None]
